FAERS Safety Report 8953722 (Version 1)
Quarter: 2012Q4

REPORT INFORMATION
  Report Type: 
  Country: BR (occurrence: BR)
  Receive Date: 20121206
  Receipt Date: 20121206
  Transmission Date: 20130627
  Serious: Yes (Other)
  Sender: FDA-Public Use
  Company Number: BR-ASTRAZENECA-2012SE89923

PATIENT
  Sex: Female

DRUGS (3)
  1. KLARICID [Suspect]
     Route: 048
  2. PULMICORT [Suspect]
     Dosage: 0.50 MG/ML SINGLE DOSE
     Route: 055
  3. ALLEGRA [Suspect]
     Route: 048

REACTIONS (1)
  - Anaphylactic shock [Unknown]
